FAERS Safety Report 16969572 (Version 2)
Quarter: 2019Q4

REPORT INFORMATION
  Report Type: Spontaneous
  Country: US (occurrence: US)
  Receive Date: 20191029
  Receipt Date: 20191127
  Transmission Date: 20200122
  Serious: Yes (Other)
  Sender: FDA-Public Use
  Company Number: US-BAYER-2019-192238

PATIENT
  Age: 31 Year
  Sex: Female
  Weight: 105.67 kg

DRUGS (7)
  1. MIDAZOLAM HCL [Concomitant]
     Active Substance: MIDAZOLAM HYDROCHLORIDE
     Dosage: 1 MG
     Route: 042
  2. DEXAMETHASONE SODIUM [Concomitant]
     Dosage: 1 MG
     Route: 042
  3. MIRENA [Suspect]
     Active Substance: LEVONORGESTREL
     Indication: CONTRACEPTION
     Dosage: 20 MCG/24HR, CONT
     Route: 015
     Dates: start: 20150826, end: 20190516
  4. LIDOCAINE HCL [Concomitant]
     Active Substance: LIDOCAINE HYDROCHLORIDE
     Dosage: 10 MG
     Route: 042
  5. ONDANSETRON [Concomitant]
     Active Substance: ONDANSETRON
     Dosage: 1 MG
     Route: 042
  6. MIRENA [Suspect]
     Active Substance: LEVONORGESTREL
     Indication: CONTRACEPTION
  7. FENTANYL CITRATE. [Concomitant]
     Active Substance: FENTANYL CITRATE
     Dosage: 0.1 MG

REACTIONS (4)
  - Device defective [None]
  - Uterine perforation [Recovered/Resolved]
  - Device physical property issue [None]
  - Device issue [Recovered/Resolved]

NARRATIVE: CASE EVENT DATE: 201904
